FAERS Safety Report 7815954-0 (Version None)
Quarter: 2011Q4

REPORT INFORMATION
  Report Type: 
  Country: None (occurrence: None)
  Receive Date: 20111014
  Receipt Date: 20110919
  Transmission Date: 20120403
  Serious: Yes (Hospitalization, Other)
  Sender: FDA-Public Use
  Company Number: DE-ROCHE-1000506

PATIENT
  Sex: Female
  Weight: 54.071 kg

DRUGS (6)
  1. OMALIZUMAB [Suspect]
     Indication: ASTHMA
     Route: 058
     Dates: start: 20070307, end: 20091020
  2. SINGULAIR [Concomitant]
  3. SYMBICORT [Concomitant]
     Dosage: 320/9UG
  4. OMALIZUMAB [Suspect]
     Dosage: 300MG EVERY 2 WEEKS, 150MG EVERY 2 WEEKS
     Route: 058
     Dates: start: 20091126, end: 20100111
  5. OMALIZUMAB [Suspect]
     Route: 058
     Dates: start: 20100401
  6. ALLERGOSPASMIN [Concomitant]

REACTIONS (2)
  - ASTHMA [None]
  - INFECTION [None]
